FAERS Safety Report 7279929-5 (Version None)
Quarter: 2011Q1

REPORT INFORMATION
  Report Type: 
  Country: None (occurrence: None)
  Receive Date: 20110208
  Receipt Date: 20101222
  Transmission Date: 20110831
  Serious: Yes (Other)
  Sender: FDA-Public Use
  Company Number: US-BAYER-201023617NA

PATIENT
  Sex: Female
  Weight: 86.168 kg

DRUGS (5)
  1. SUMATRIPTAN [Concomitant]
     Indication: MIGRAINE
  2. TOPAMAX [Concomitant]
     Indication: MIGRAINE
     Dosage: UNK
     Dates: start: 20081101
  3. OCELLA [Suspect]
     Indication: ORAL CONTRACEPTION
     Dosage: UNK UNK, UNK
     Route: 048
     Dates: start: 20080301, end: 20090801
  4. MELOXICAM [Concomitant]
     Indication: BACK DISORDER
     Dosage: UNK
     Dates: start: 20071201, end: 20091201
  5. YASMIN [Suspect]
     Indication: ORAL CONTRACEPTION
     Dosage: UNK UNK, UNK
     Route: 048
     Dates: start: 20080301, end: 20090801

REACTIONS (3)
  - ABDOMINAL PAIN [None]
  - CHEST PAIN [None]
  - CHOLELITHIASIS [None]
